FAERS Safety Report 9477200 (Version 1)
Quarter: 2013Q3

REPORT INFORMATION
  Report Type: Spontaneous
  Country: IT (occurrence: IT)
  Receive Date: 20130826
  Receipt Date: 20130826
  Transmission Date: 20140515
  Serious: Yes (Hospitalization)
  Sender: FDA-Public Use
  Company Number: IT-BAYER-2013-102747

PATIENT
  Age: 83 Year
  Sex: Male

DRUGS (3)
  1. CARDIOASPIRIN [Suspect]
     Dosage: DAILY DOSE 100 MG
     Route: 048
     Dates: start: 20130615, end: 20130620
  2. SIMVASTATIN [Suspect]
     Dosage: DAILY DOSE 20 MG
     Route: 048
     Dates: start: 20130615, end: 20130615
  3. PLAVIX [Suspect]
     Dosage: DAILY DOSE 75 MG
     Route: 048
     Dates: start: 20130615, end: 20130620

REACTIONS (3)
  - Craniocerebral injury [Unknown]
  - Syncope [Unknown]
  - Vertigo [Unknown]
